FAERS Safety Report 12629993 (Version 2)
Quarter: 2016Q3

REPORT INFORMATION
  Report Type: Spontaneous
  Country: US (occurrence: US)
  Receive Date: 20160808
  Receipt Date: 20160920
  Transmission Date: 20161109
  Serious: Yes (Other)
  Sender: FDA-Public Use
  Company Number: US-PFIZER INC-2016374197

PATIENT
  Age: 65 Year
  Sex: Female

DRUGS (1)
  1. IBRANCE [Suspect]
     Active Substance: PALBOCICLIB
     Indication: BREAST CANCER
     Dosage: 75 MG (ONE CAPSULE), ONCE DAILY FOR 21 DAYS FOLLOWED BY 7 DAYS OFF PER CYCLE
     Route: 048
     Dates: start: 201604

REACTIONS (3)
  - Abdominal pain [Unknown]
  - Abdominal hernia [Unknown]
  - Productive cough [Unknown]
